FAERS Safety Report 16910716 (Version 5)
Quarter: 2020Q2

REPORT INFORMATION
  Report Type: Spontaneous
  Country: DE (occurrence: DE)
  Receive Date: 20191012
  Receipt Date: 20200401
  Transmission Date: 20200713
  Serious: Yes (Death, Other)
  Sender: FDA-Public Use
  Company Number: DE-B.I. PHARMACEUTICALS,INC./RIDGEFIELD-2019-BI-106465

PATIENT
  Age: 57 Year
  Sex: Male

DRUGS (5)
  1. VARGATEF [Suspect]
     Active Substance: NINTEDANIB
     Indication: ADENOCARCINOMA
     Route: 048
     Dates: start: 201812, end: 201904
  2. DOCETAXEL. [Suspect]
     Active Substance: DOCETAXEL
     Indication: PRODUCT USED FOR UNKNOWN INDICATION
     Route: 065
     Dates: start: 20171201
  3. DOCETAXEL. [Suspect]
     Active Substance: DOCETAXEL
     Route: 065
     Dates: start: 201806, end: 201810
  4. VARGATEF [Suspect]
     Active Substance: NINTEDANIB
     Indication: NON-SMALL CELL LUNG CANCER
     Route: 048
     Dates: start: 20171201, end: 201812
  5. DOCETAXEL. [Suspect]
     Active Substance: DOCETAXEL
     Route: 065
     Dates: start: 201803, end: 201804

REACTIONS (6)
  - Epidermolysis [Recovered/Resolved]
  - Palmar-plantar erythrodysaesthesia syndrome [Recovered/Resolved]
  - Arthralgia [Recovering/Resolving]
  - Malignant neoplasm progression [Unknown]
  - Epidermolysis [Recovering/Resolving]
  - Death [Fatal]

NARRATIVE: CASE EVENT DATE: 20181109
